FAERS Safety Report 4742287-1 (Version None)
Quarter: 2005Q3

REPORT INFORMATION
  Report Type: 
  Country: None (occurrence: None)
  Receive Date: 20050811
  Receipt Date: 20050404
  Transmission Date: 20060218
  Serious: No
  Sender: FDA-Public Use
  Company Number: US-GLAXOSMITHKLINE-A0552584A

PATIENT
  Sex: Male

DRUGS (1)
  1. PAXIL CR [Suspect]
     Indication: ANXIETY
     Dosage: 12.5MG PER DAY
     Route: 048

REACTIONS (8)
  - AFFECTIVE DISORDER [None]
  - DRUG WITHDRAWAL SYNDROME [None]
  - EJACULATION FAILURE [None]
  - LIBIDO DECREASED [None]
  - NIPPLE PAIN [None]
  - PRIAPISM [None]
  - SEXUAL DYSFUNCTION [None]
  - SLEEP DISORDER [None]
